FAERS Safety Report 7091978-9 (Version None)
Quarter: 2010Q4

REPORT INFORMATION
  Report Type: 
  Country: None (occurrence: None)
  Receive Date: 20101109
  Receipt Date: 20101103
  Transmission Date: 20110411
  Serious: Yes (Death)
  Sender: FDA-Public Use
  Company Number: US-BAXTER-2010BH027218

PATIENT
  Age: 14 Year
  Sex: Male

DRUGS (1)
  1. MORPHINE SULFATE [Suspect]
     Indication: SURGERY
     Route: 042
     Dates: start: 20100708, end: 20100708

REACTIONS (1)
  - DEATH [None]
